FAERS Safety Report 18203337 (Version 3)
Quarter: 2021Q1

REPORT INFORMATION
  Report Type: Report from Study
  Country: CA (occurrence: CA)
  Receive Date: 20200827
  Receipt Date: 20210301
  Transmission Date: 20210419
  Serious: Yes (Other)
  Sender: FDA-Public Use
  Company Number: CA-PFIZER INC-2020330533

PATIENT
  Age: 68 Year
  Sex: Male

DRUGS (9)
  1. SYMBICORT [Suspect]
     Active Substance: BUDESONIDE\FORMOTEROL FUMARATE DIHYDRATE
     Dosage: 6 DF, EVERY 8 HOURS
     Route: 055
  2. SINGULAIR [Suspect]
     Active Substance: MONTELUKAST SODIUM
     Dosage: 10 MG, QD
     Route: 065
  3. VITAMIN D [ERGOCALCIFEROL] [Suspect]
     Active Substance: ERGOCALCIFEROL
     Dosage: UNK
     Route: 065
  4. SPIRIVA [Suspect]
     Active Substance: TIOTROPIUM BROMIDE MONOHYDRATE
     Dosage: UNK
     Route: 065
  5. NUCALA [Suspect]
     Active Substance: MEPOLIZUMAB
     Dosage: UNK
     Route: 065
  6. OMNARIS [Suspect]
     Active Substance: CICLESONIDE
     Dosage: UNK UNK, TID
     Route: 055
  7. RAMIPRIL. [Suspect]
     Active Substance: RAMIPRIL
     Dosage: 5 MG, QD
     Route: 048
  8. BISOPROLOL FUMARATE. [Suspect]
     Active Substance: BISOPROLOL FUMARATE
     Dosage: 10 MG, QD
     Route: 048
  9. SALBUTAMOL SULFATE [Suspect]
     Active Substance: ALBUTEROL SULFATE
     Dosage: UNK
     Route: 065

REACTIONS (20)
  - Drug hypersensitivity [Unknown]
  - Nasal disorder [Unknown]
  - Pneumonia [Unknown]
  - Middle ear effusion [Unknown]
  - Sinusitis [Unknown]
  - Fungal infection [Unknown]
  - Nasal polyps [Unknown]
  - Cough [Unknown]
  - Enterobacter infection [Unknown]
  - Respiratory tract infection [Unknown]
  - Eosinophil count increased [Unknown]
  - Dyspnoea [Unknown]
  - Nasal obstruction [Unknown]
  - Blood immunoglobulin E increased [Unknown]
  - Wheezing [Unknown]
  - Infection [Unknown]
  - Multiple allergies [Unknown]
  - Nasal mucosal disorder [Unknown]
  - Sinus disorder [Unknown]
  - Tryptase increased [Unknown]
